FAERS Safety Report 24274057 (Version 1)
Quarter: 2024Q3

REPORT INFORMATION
  Report Type: Spontaneous
  Country: CA (occurrence: CA)
  Receive Date: 20240902
  Receipt Date: 20240902
  Transmission Date: 20241017
  Serious: Yes (Other)
  Sender: SANOFI AVENTIS
  Company Number: CA-SANOFI-01477096

PATIENT
  Age: 9 Year
  Sex: Male
  Weight: 24.5 kg

DRUGS (4)
  1. DUPIXENT [Suspect]
     Active Substance: DUPILUMAB
     Indication: Eosinophilic oesophagitis
     Dosage: 300 MG, Q4W
     Route: 058
     Dates: start: 202108, end: 202111
  2. DUPIXENT [Suspect]
     Active Substance: DUPILUMAB
     Indication: Enteritis
     Dosage: 300 MG, QOW
     Route: 058
     Dates: start: 202111, end: 202212
  3. DUPIXENT [Suspect]
     Active Substance: DUPILUMAB
     Dosage: 300 MG, Q10D
     Route: 058
  4. PERIACTIN [Concomitant]
     Active Substance: CYPROHEPTADINE HYDROCHLORIDE

REACTIONS (4)
  - Neuropathy peripheral [Recovering/Resolving]
  - Paraesthesia [Recovering/Resolving]
  - Off label use [Unknown]
  - Lipoma [Not Recovered/Not Resolved]

NARRATIVE: CASE EVENT DATE: 20220601
